FAERS Safety Report 9122562 (Version 1)
Quarter: 2013Q1

REPORT INFORMATION
  Report Type: Spontaneous
  Country: LV (occurrence: LV)
  Receive Date: 20130227
  Receipt Date: 20130227
  Transmission Date: 20140127
  Serious: Yes (Disabling)
  Sender: FDA-Public Use
  Company Number: LV-BRISTOL-MYERS SQUIBB COMPANY-17413667

PATIENT
  Age: 67 Year
  Sex: Female

DRUGS (1)
  1. GLUCOPHAGE [Suspect]
     Indication: DIABETES MELLITUS
     Dosage: GLUCOPHAGE 1000MG IS THE STRENGTH
     Dates: start: 2012, end: 201206

REACTIONS (1)
  - Skin ulcer [Recovered/Resolved]
